FAERS Safety Report 21551399 (Version 2)
Quarter: 2023Q2

REPORT INFORMATION
  Report Type: Report from Study
  Country: BR (occurrence: BR)
  Receive Date: 20221103
  Receipt Date: 20230420
  Transmission Date: 20230722
  Serious: Yes (Other)
  Sender: FDA-Public Use
  Company Number: BR-JNJFOC-20221058634

PATIENT
  Age: 5 Decade
  Sex: Female
  Weight: 56 kg

DRUGS (1)
  1. INFLIXIMAB [Suspect]
     Active Substance: INFLIXIMAB
     Indication: Crohn^s disease
     Dosage: 3 AMPOLES, THEN 6 WITH DOSE OPTIMIZATION
     Route: 041
     Dates: start: 20220215, end: 20220729

REACTIONS (1)
  - Systemic lupus erythematosus [Unknown]
